FAERS Safety Report 6061523-5 (Version None)
Quarter: 2009Q1

REPORT INFORMATION
  Report Type: 
  Country: None (occurrence: None)
  Receive Date: 20090202
  Receipt Date: 20090126
  Transmission Date: 20090719
  Serious: Yes (Hospitalization)
  Sender: FDA-Public Use
  Company Number: JP-AVENTIS-200910204JP

PATIENT

DRUGS (1)
  1. FUROSEMIDE [Suspect]

REACTIONS (2)
  - ANOREXIA NERVOSA [None]
  - DRUG ABUSE [None]
